FAERS Safety Report 8836880 (Version 1)
Quarter: 2012Q4

REPORT INFORMATION
  Report Type: 
  Country: US (occurrence: US)
  Receive Date: 20121012
  Receipt Date: 20121012
  Transmission Date: 20130627
  Serious: No
  Sender: FDA-Public Use
  Company Number: US-009507513-1210USA004276

PATIENT
  Sex: Female

DRUGS (3)
  1. PEG-INTRON [Suspect]
  2. REBETOL [Suspect]
     Route: 048
  3. TELAPREVIR [Suspect]
     Dosage: 750 mg, tid
     Route: 048

REACTIONS (3)
  - Hyperhidrosis [Unknown]
  - Dizziness [Unknown]
  - Dizziness [Unknown]
